FAERS Safety Report 24700218 (Version 1)
Quarter: 2024Q4

REPORT INFORMATION
  Report Type: Spontaneous
  Country: US (occurrence: US)
  Receive Date: 20241205
  Receipt Date: 20241205
  Transmission Date: 20250115
  Serious: Yes (Other)
  Sender: RANBAXY
  Company Number: US-SUN PHARMACEUTICAL INDUSTRIES LTD-2024R1-482277

PATIENT
  Age: 70 Year
  Sex: Female

DRUGS (2)
  1. DECITABINE [Suspect]
     Active Substance: DECITABINE
     Indication: Splenomegaly
     Dosage: UNK
     Route: 065
  2. FEDRATINIB [Suspect]
     Active Substance: FEDRATINIB
     Indication: Splenomegaly
     Dosage: UNK
     Route: 065

REACTIONS (1)
  - Cytopenia [Unknown]
